FAERS Safety Report 15758851 (Version 3)
Quarter: 2019Q1

REPORT INFORMATION
  Report Type: Spontaneous
  Country: NO (occurrence: NO)
  Receive Date: 20181225
  Receipt Date: 20190316
  Transmission Date: 20190417
  Serious: Yes (Hospitalization, Other)
  Sender: FDA-Public Use
  Company Number: PHHY2018NO193451

PATIENT
  Age: 41 Year
  Sex: Female

DRUGS (3)
  1. CERTOLIZUMAB PEGOL [Suspect]
     Active Substance: CERTOLIZUMAB PEGOL
     Indication: SPONDYLOARTHROPATHY
     Route: 065
  2. ETANERCEPT [Suspect]
     Active Substance: ETANERCEPT
     Indication: SPONDYLITIS
     Dosage: UNK
     Route: 065
  3. METHOTREXATE. [Suspect]
     Active Substance: METHOTREXATE
     Indication: SPONDYLOARTHROPATHY
     Route: 065

REACTIONS (8)
  - Tertiary syphilis [Recovered/Resolved]
  - Syphilis [Unknown]
  - Vulvovaginitis streptococcal [Unknown]
  - Spondyloarthropathy [Unknown]
  - Respiratory tract infection [Unknown]
  - Pyrexia [Unknown]
  - Fatigue [Unknown]
  - Weight decreased [Unknown]
